FAERS Safety Report 8068578-7 (Version None)
Quarter: 2012Q1

REPORT INFORMATION
  Report Type: 
  Country: None (occurrence: None)
  Receive Date: 20120124
  Receipt Date: 20111109
  Transmission Date: 20120608
  Serious: No
  Sender: FDA-Public Use
  Company Number: US-AMGEN-USASP2011059058

PATIENT
  Sex: Female

DRUGS (1)
  1. PROLIA [Suspect]
     Indication: OSTEOPOROSIS POSTMENOPAUSAL
     Dosage: 60 MG, Q6MO
     Dates: start: 20101201, end: 20110101

REACTIONS (14)
  - MUSCULAR WEAKNESS [None]
  - FLATULENCE [None]
  - ABDOMINAL PAIN [None]
  - MYALGIA [None]
  - FATIGUE [None]
  - PRURITUS [None]
  - SKIN EXFOLIATION [None]
  - NIGHT SWEATS [None]
  - RASH ERYTHEMATOUS [None]
  - RASH PUSTULAR [None]
  - VERTIGO [None]
  - CONTUSION [None]
  - BACK PAIN [None]
  - BLOOD GLUCOSE FLUCTUATION [None]
